FAERS Safety Report 6569223-X (Version None)
Quarter: 2010Q1

REPORT INFORMATION
  Report Type: 
  Country: None (occurrence: None)
  Receive Date: 20100201
  Receipt Date: 20100201
  Transmission Date: 20100710
  Serious: Yes (Other)
  Sender: FDA-Public Use
  Company Number: None

PATIENT
  Age: 30 Year
  Sex: Male
  Weight: 74.8435 kg

DRUGS (1)
  1. TYLENOL (CAPLET) [Suspect]
     Indication: NECK PAIN
     Dosage: 4 DAILY FOR A YEAR PO WHOLE YEAR
     Route: 048
     Dates: start: 20081001, end: 20091101

REACTIONS (18)
  - ABDOMINAL DISTENSION [None]
  - ABDOMINAL PAIN UPPER [None]
  - ABNORMAL BEHAVIOUR [None]
  - BEDRIDDEN [None]
  - CHEST PAIN [None]
  - CLUMSINESS [None]
  - COUGH [None]
  - DIARRHOEA [None]
  - DIZZINESS [None]
  - FEELING ABNORMAL [None]
  - FLATULENCE [None]
  - HEADACHE [None]
  - HOT FLUSH [None]
  - IMPAIRED WORK ABILITY [None]
  - MALAISE [None]
  - NAUSEA [None]
  - VISION BLURRED [None]
  - VOMITING [None]
